FAERS Safety Report 13204760 (Version 2)
Quarter: 2017Q1

REPORT INFORMATION
  Report Type: Spontaneous
  Country: US (occurrence: US)
  Receive Date: 20170209
  Receipt Date: 20170228
  Transmission Date: 20170428
  Serious: No
  Sender: FDA-Public Use
  Company Number: US-GLAXOSMITHKLINE-US2017GSK017570

PATIENT
  Sex: Female
  Weight: 70.31 kg

DRUGS (15)
  1. ROPINIROLE. [Suspect]
     Active Substance: ROPINIROLE
     Indication: RESTLESS LEGS SYNDROME
     Dosage: 1D AT NIGHT
     Route: 048
     Dates: start: 2016
  2. ROPINIROLE. [Suspect]
     Active Substance: ROPINIROLE
     Indication: NEURALGIA
  3. LEVOTHYROXINE TABLET [Concomitant]
     Active Substance: LEVOTHYROXINE
     Indication: THYROID OPERATION
     Dosage: 75 ?G, 1D FOR ABOUT 30 YEARS
     Route: 048
  4. LISINOPRIL. [Concomitant]
     Active Substance: LISINOPRIL
     Indication: BLOOD PRESSURE INADEQUATELY CONTROLLED
     Dosage: 40 MG, 1D
     Route: 048
  5. BABY ASPIRIN TABLET [Concomitant]
     Indication: BRAIN OPERATION
     Dosage: 81 MG, 1D
     Route: 048
     Dates: start: 2005
  6. LYRICA [Suspect]
     Active Substance: PREGABALIN
     Indication: DIABETIC NEUROPATHY
     Dosage: 100 MG CAPSULES, TID
  7. ALLOPURINOL. [Concomitant]
     Active Substance: ALLOPURINOL
     Indication: RENAL LITHIASIS PROPHYLAXIS
     Dosage: 100 MG, BID
     Route: 048
  8. AMLODIPINE [Concomitant]
     Active Substance: AMLODIPINE BESYLATE
     Indication: HYPERTENSION
     Dosage: 5 MG, 1D
     Route: 048
     Dates: start: 2016
  9. FUROSEMIDE. [Concomitant]
     Active Substance: FUROSEMIDE
     Indication: RENAL LITHIASIS PROPHYLAXIS
     Dosage: 40 MG, 1D
     Route: 048
  10. METFORMIN TABLET [Concomitant]
     Active Substance: METFORMIN HYDROCHLORIDE
     Indication: DIABETES MELLITUS
     Dosage: 500 MG, BID; STARTED 10 - 12 YEARS AGO
     Route: 048
  11. SERTRALINE [Concomitant]
     Active Substance: SERTRALINE HYDROCHLORIDE
     Indication: NERVOUSNESS
     Dosage: 50 MG, 1D
     Route: 048
     Dates: start: 2015
  12. TOUJEO [Concomitant]
     Active Substance: INSULIN GLARGINE
     Indication: PRODUCT USED FOR UNKNOWN INDICATION
     Dosage: 28 UNITS, 1D AT NIGHT
     Route: 042
     Dates: start: 2016
  13. PRAVASTATIN TABLET [Concomitant]
     Indication: BLOOD CHOLESTEROL INCREASED
     Dosage: 40 MG, 1D
     Route: 048
  14. PROPANOLOL [Concomitant]
     Active Substance: PROPRANOLOL HYDROCHLORIDE
     Indication: MIGRAINE PROPHYLAXIS
     Dosage: 40 MG, BID; STARTED AT LEAST 30 YEARS AGO
     Route: 048
  15. NEXIUM [Concomitant]
     Active Substance: ESOMEPRAZOLE MAGNESIUM
     Indication: GASTROOESOPHAGEAL REFLUX DISEASE
     Dosage: 20 MG CAPSULE, 1D FOR ABOUT 25 YEARS
     Route: 048

REACTIONS (6)
  - Pain [Not Recovered/Not Resolved]
  - Adverse reaction [Unknown]
  - Drug dose omission [Not Recovered/Not Resolved]
  - Drug effect incomplete [Not Recovered/Not Resolved]
  - Product use issue [Not Recovered/Not Resolved]
  - Off label use [Not Recovered/Not Resolved]

NARRATIVE: CASE EVENT DATE: 2016
